FAERS Safety Report 16625509 (Version 4)
Quarter: 2020Q3

REPORT INFORMATION
  Report Type: Report from Study
  Country: US (occurrence: US)
  Receive Date: 20190724
  Receipt Date: 20200921
  Transmission Date: 20201102
  Serious: Yes (Hospitalization, Other)
  Sender: FDA-Public Use
  Company Number: PHHY2019US168560

PATIENT
  Age: 58 Year
  Sex: Female
  Weight: 90.25 kg

DRUGS (4)
  1. LAMPRENE [Suspect]
     Active Substance: CLOFAZIMINE
     Dosage: 100 MG
     Route: 048
     Dates: start: 20190814
  2. LAMPRENE [Suspect]
     Active Substance: CLOFAZIMINE
     Dosage: 100 MG, UNK
     Route: 048
     Dates: start: 20190708
  3. LAMPRENE [Suspect]
     Active Substance: CLOFAZIMINE
     Indication: MYCOBACTERIAL INFECTION
     Dosage: 100 MG, UNK
     Route: 048
     Dates: start: 20171206, end: 20190608
  4. ETHAMBUTOL [Concomitant]
     Active Substance: ETHAMBUTOL HYDROCHLORIDE
     Indication: PRODUCT USED FOR UNKNOWN INDICATION
     Dosage: UNK
     Route: 065

REACTIONS (6)
  - Neuropathy peripheral [Not Recovered/Not Resolved]
  - Mycobacterial infection [Recovered/Resolved]
  - Vitreous floaters [Not Recovered/Not Resolved]
  - Electrocardiogram QT prolonged [Recovered/Resolved]
  - Vitreous detachment [Not Recovered/Not Resolved]
  - Vision blurred [Not Recovered/Not Resolved]

NARRATIVE: CASE EVENT DATE: 20190609
